FAERS Safety Report 9523890 (Version 1)
Quarter: 2013Q3

REPORT INFORMATION
  Report Type: Spontaneous
  Country: US (occurrence: None)
  Receive Date: 20130912
  Receipt Date: 20130912
  Transmission Date: 20140515
  Serious: Yes (Congenital Anomaly)
  Sender: FDA-Public Use
  Company Number: 1887872

PATIENT
  Sex: Male
  Weight: 1.81 kg

DRUGS (2)
  1. CARBOPLATIN [Suspect]
     Route: 064
  2. PACLITAXEL [Suspect]
     Route: 064

REACTIONS (4)
  - Maternal drugs affecting foetus [None]
  - Talipes [None]
  - Low birth weight baby [None]
  - Caesarean section [None]
